FAERS Safety Report 9798239 (Version 2)
Quarter: 2014Q2

REPORT INFORMATION
  Report Type: Spontaneous
  Country: US (occurrence: US)
  Receive Date: 20140106
  Receipt Date: 20140409
  Transmission Date: 20141212
  Serious: No
  Sender: FDA-Public Use
  Company Number: US-MYLANLABS-2013S1026576

PATIENT
  Age: 48 Year
  Sex: Female
  Weight: 41.28 kg

DRUGS (11)
  1. ABACAVIR TABLETS USP [Suspect]
     Indication: HIV INFECTION
     Route: 048
     Dates: start: 201307, end: 201308
  2. NEURONTIN [Concomitant]
  3. ABILIFY [Concomitant]
  4. NAPROSYN [Concomitant]
  5. NORVIR [Concomitant]
  6. VENTOLIN HFA [Concomitant]
     Dosage: 2 PUFFS EVERY 4 HOURS
  7. REYATAZ [Concomitant]
  8. ISENTRESS [Concomitant]
  9. MULTIVITAMIN [Concomitant]
  10. REMERON [Concomitant]
  11. DEPAKOTE [Concomitant]
     Dosage: EXTENDED RELEASE

REACTIONS (4)
  - Abdominal pain upper [Recovered/Resolved]
  - Abdominal distension [Recovered/Resolved]
  - Diarrhoea [Recovered/Resolved]
  - Nausea [Recovered/Resolved]
